FAERS Safety Report 4640571-3 (Version None)
Quarter: 2005Q2

REPORT INFORMATION
  Report Type: 
  Country: None (occurrence: None)
  Receive Date: 20050420
  Receipt Date: 20050408
  Transmission Date: 20051028
  Serious: Yes (Death, Hospitalization)
  Sender: FDA-Public Use
  Company Number: FR-BRISTOL-MYERS SQUIBB COMPANY-12934709

PATIENT
  Age: 83 Year
  Sex: Female

DRUGS (3)
  1. GLUCOPHAGE [Suspect]
     Indication: DIABETES MELLITUS
     Route: 048
     Dates: end: 20050313
  2. SKENAN [Suspect]
     Indication: BONE PAIN
     Route: 048
  3. PROFENID [Suspect]
     Indication: BONE PAIN
     Route: 040
     Dates: start: 20050307, end: 20050313

REACTIONS (7)
  - BONE PAIN [None]
  - CARDIAC FAILURE [None]
  - COMA [None]
  - HYPERKALAEMIA [None]
  - LACTIC ACIDOSIS [None]
  - RENAL FAILURE ACUTE [None]
  - SKIN DISCOLOURATION [None]
